FAERS Safety Report 6378642-6 (Version None)
Quarter: 2009Q3

REPORT INFORMATION
  Report Type: 
  Country: None (occurrence: None)
  Receive Date: 20090928
  Receipt Date: 20090915
  Transmission Date: 20100115
  Serious: Yes (Death)
  Sender: FDA-Public Use
  Company Number: KR-ROCHE-654528

PATIENT
  Age: 47 Year
  Sex: Female

DRUGS (1)
  1. TAMIFLU [Suspect]
     Dosage: INDICATION REPORTED AS TREATMENT FOR H1N1 (S-OIV) INFLUENZA.
     Route: 065
     Dates: start: 20090829

REACTIONS (1)
  - SHOCK [None]
